FAERS Safety Report 9601372 (Version 3)
Quarter: 2013Q4

REPORT INFORMATION
  Report Type: Spontaneous
  Country: GR (occurrence: GR)
  Receive Date: 20131007
  Receipt Date: 20131025
  Transmission Date: 20140711
  Serious: Yes (Disabling)
  Sender: FDA-Public Use
  Company Number: GR-BIOGENIDEC-2013BI094658

PATIENT
  Age: 29 Year
  Sex: Female
  Weight: 60 kg

DRUGS (4)
  1. TYSABRI [Suspect]
     Indication: MULTIPLE SCLEROSIS
     Route: 042
     Dates: start: 20130601, end: 20130626
  2. EMSELEX [Concomitant]
     Route: 048
  3. MIOREL [Concomitant]
     Route: 048
  4. NEUROBION [Concomitant]
     Route: 048

REACTIONS (5)
  - Central nervous system lesion [Unknown]
  - Muscular weakness [Unknown]
  - Asthenia [Unknown]
  - Dysphagia [Unknown]
  - Somnolence [Unknown]
